FAERS Safety Report 9871031 (Version 1)
Quarter: 2014Q1

REPORT INFORMATION
  Report Type: Spontaneous
  Country: US (occurrence: None)
  Receive Date: 20140204
  Receipt Date: 20140204
  Transmission Date: 20141002
  Serious: No
  Sender: FDA-Public Use
  Company Number: None

PATIENT
  Age: 45 Year
  Sex: Male

DRUGS (9)
  1. LETAIRIS [Suspect]
     Route: 048
     Dates: start: 20131109, end: 201312
  2. FUROSEMIDE [Concomitant]
  3. SILDENAFIL [Concomitant]
  4. SPIRONOLACTONE [Concomitant]
  5. PROPANOLOL [Concomitant]
  6. FLUOXETINE [Concomitant]
  7. FERROURSE GLUCONATE [Concomitant]
  8. OMEPRAZOLE [Suspect]
  9. ASPIRIN [Concomitant]

REACTIONS (2)
  - Swelling face [None]
  - Oedema peripheral [None]
